FAERS Safety Report 15250571 (Version 1)
Quarter: 2018Q3

REPORT INFORMATION
  Report Type: Spontaneous
  Country: US (occurrence: US)
  Receive Date: 20180807
  Receipt Date: 20180807
  Transmission Date: 20181010
  Serious: No
  Sender: FDA-Public Use
  Company Number: US-GALDERMA-US17006296

PATIENT
  Sex: Female

DRUGS (1)
  1. DIFFERIN GEL [Suspect]
     Active Substance: ADAPALENE
     Indication: ACNE CYSTIC
     Dosage: 0.1%
     Route: 061

REACTIONS (6)
  - Scar [Recovering/Resolving]
  - Acne [Unknown]
  - Skin burning sensation [Unknown]
  - Acne cystic [Recovered/Resolved]
  - Skin irritation [Unknown]
  - Pain of skin [Unknown]
